FAERS Safety Report 4421498-9 (Version None)
Quarter: 2004Q3

REPORT INFORMATION
  Report Type: 
  Country: None (occurrence: None)
  Receive Date: 20040709
  Receipt Date: 20031003
  Transmission Date: 20050211
  Serious: Yes (Hospitalization)
  Sender: FDA-Public Use
  Company Number: US-SHR-03-016053

PATIENT
  Sex: 0

DRUGS (1)
  1. ULTRAVIST 370 [Suspect]
     Indication: UROGRAPHY
     Dosage: 1 DOSE
     Dates: start: 20030917, end: 20030917

REACTIONS (3)
  - BLOOD PRESSURE INCREASED [None]
  - RESPIRATORY DISTRESS [None]
  - TREMOR [None]
